FAERS Safety Report 10227601 (Version 3)
Quarter: 2014Q2

REPORT INFORMATION
  Report Type: Spontaneous
  Country: US (occurrence: US)
  Receive Date: 20140610
  Receipt Date: 20140623
  Transmission Date: 20141212
  Serious: Yes (Death, Hospitalization)
  Sender: FDA-Public Use
  Company Number: US-B.I. PHARMACEUTICALS,INC./RIDGEFIELD-2014-BI-25547BP

PATIENT
  Age: 85 Year
  Sex: Female
  Weight: 67 kg

DRUGS (28)
  1. SPIRIVA [Suspect]
     Indication: CHRONIC OBSTRUCTIVE PULMONARY DISEASE
     Dosage: 18 MCG
     Route: 055
     Dates: start: 2009
  2. ASPIRIN [Concomitant]
     Indication: CARDIAC DISORDER
     Dosage: 81 MG
     Route: 048
  3. ATROVENT [Concomitant]
     Indication: CHRONIC OBSTRUCTIVE PULMONARY DISEASE
     Dosage: FORMULATION: NASAL SPRAY
     Route: 045
  4. AVAPRO [Concomitant]
     Indication: BLOOD PRESSURE
     Dosage: 300 MG
     Route: 048
  5. CLARITIN [Concomitant]
     Indication: SEASONAL ALLERGY
     Dosage: 10 MG
     Route: 048
  6. CLONIDINE [Concomitant]
     Indication: HYPERTENSION
     Dosage: 0.4 MG
     Route: 048
  7. COREG [Concomitant]
     Indication: HYPERTENSION
     Dosage: 25 MG
     Route: 048
  8. CRESTOR [Concomitant]
     Indication: BLOOD CHOLESTEROL INCREASED
     Dosage: 10 MG
     Route: 048
  9. DEXILANT [Concomitant]
     Indication: IMPAIRED GASTRIC EMPTYING
     Dosage: 60 MG
     Route: 048
  10. DITROPAN [Concomitant]
     Indication: INCONTINENCE
     Dosage: 10 MG
     Route: 048
  11. DOC Q LACE [Concomitant]
     Indication: CONSTIPATION
     Dosage: 200 MG
     Route: 048
  12. FLONASE [Concomitant]
     Indication: SEASONAL ALLERGY
     Dosage: FORMULATION:NASAL SPRAY
     Route: 045
  13. FOSAMAX [Concomitant]
     Indication: OSTEOPOROSIS
     Route: 048
  14. GLUCOVANCE [Concomitant]
     Indication: DIABETES MELLITUS
     Dosage: STRENGTH: 2.5MG/500MG; DAILY DOSE: 5MG/1000MG
     Route: 048
  15. HUMULIN INSULIN [Concomitant]
     Indication: DIABETES MELLITUS
     Dosage: FORMULATION: SUBCUTANEOUS
     Route: 058
  16. LASIX [Concomitant]
     Indication: FLUID RETENTION
     Dosage: 20 MG
     Route: 048
  17. LYRICA [Concomitant]
     Indication: NEURALGIA
     Dosage: 100 MG
     Route: 048
  18. MAGNESIUM OXIDE [Concomitant]
     Indication: SUPPLEMENTATION THERAPY
     Dosage: 400 MG
     Route: 048
  19. POTASSIUM [Concomitant]
     Indication: SUPPLEMENTATION THERAPY
     Dosage: 20 MEQ
     Route: 048
  20. PULMICORT [Concomitant]
     Indication: CHRONIC OBSTRUCTIVE PULMONARY DISEASE
     Route: 055
  21. SENNA LAX [Concomitant]
     Indication: CONSTIPATION
     Dosage: 17.2 MG
     Route: 048
  22. SINGULAR [Concomitant]
     Indication: ASTHMA
     Dosage: 10 MG
     Route: 048
  23. SODIUM CHLORIDE [Concomitant]
     Indication: SUPPLEMENTATION THERAPY
     Dosage: 1 G
     Route: 048
  24. SYNTHROID [Concomitant]
     Indication: HYPOTHYROIDISM
     Dosage: 112 MCG
     Route: 048
  25. OCUVITE [Concomitant]
     Indication: SUPPLEMENTATION THERAPY
     Route: 048
  26. IRON [Concomitant]
     Indication: SUPPLEMENTATION THERAPY
     Route: 048
  27. VITAMIN D [Concomitant]
     Indication: SUPPLEMENTATION THERAPY
     Route: 048
  28. ARTIFICIAL TEARS [Concomitant]
     Indication: DRY EYE
     Route: 050

REACTIONS (5)
  - Septic shock [Fatal]
  - Clostridium difficile infection [Unknown]
  - Dehydration [Unknown]
  - Scoliosis [Unknown]
  - Arthritis [Unknown]
